FAERS Safety Report 10137078 (Version 2)
Quarter: 2014Q2

REPORT INFORMATION
  Report Type: Spontaneous
  Country: US (occurrence: None)
  Receive Date: 20140425
  Receipt Date: 20140506
  Transmission Date: 20141212
  Serious: Yes (Death, Hospitalization)
  Sender: FDA-Public Use
  Company Number: FK201401449

PATIENT
  Age: 68 Year
  Sex: Male
  Weight: 77.11 kg

DRUGS (3)
  1. DEXAMETHASONE [Suspect]
     Indication: PLASMA CELL MYELOMA
     Route: 048
     Dates: start: 20140217, end: 20140224
  2. BORTEZOMB (BORTEZOMIB) [Concomitant]
  3. VELCADE (BORTEZOMIB) [Concomitant]

REACTIONS (2)
  - Sepsis [None]
  - Staphylococcal sepsis [None]
